FAERS Safety Report 5840802-8 (Version None)
Quarter: 2008Q3

REPORT INFORMATION
  Report Type: 
  Country: None (occurrence: None)
  Receive Date: 20080811
  Receipt Date: 20080725
  Transmission Date: 20090109
  Serious: No
  Sender: FDA-Public Use
  Company Number: US-BOEHRINGER INGELHEIM GMBH, GERMANY-2008-BP-11759BP

PATIENT
  Sex: Male

DRUGS (3)
  1. ZANTAC 75 [Suspect]
     Indication: STOMACH DISCOMFORT
     Route: 048
     Dates: start: 20080719, end: 20080724
  2. SYNTHROID [Concomitant]
  3. OXYCODONE HCL [Concomitant]

REACTIONS (2)
  - FEELING HOT [None]
  - FLUSHING [None]
